FAERS Safety Report 12395753 (Version 1)
Quarter: 2016Q2

REPORT INFORMATION
  Report Type: Spontaneous
  Country: US (occurrence: US)
  Receive Date: 20160523
  Receipt Date: 20160523
  Transmission Date: 20160815
  Serious: No
  Sender: FDA-Public Use
  Company Number: US-BANPHARM-20164680

PATIENT
  Age: 50 Year
  Weight: 106.59 kg

DRUGS (1)
  1. IBUPROFEN CAPSULES 200 MG [Suspect]
     Active Substance: IBUPROFEN
     Indication: PAIN
     Dosage: 1 - 2 DF, QD,
     Route: 048
     Dates: end: 20160123

REACTIONS (3)
  - Product physical issue [None]
  - Glossodynia [Unknown]
  - Product quality issue [Unknown]
